FAERS Safety Report 9057930 (Version 1)
Quarter: 2013Q1

REPORT INFORMATION
  Report Type: Spontaneous
  Country: US (occurrence: None)
  Receive Date: 20130204
  Receipt Date: 20130204
  Transmission Date: 20140127
  Serious: Yes (Hospitalization)
  Sender: FDA-Public Use
  Company Number: None

PATIENT
  Sex: Female
  Weight: 80 kg

DRUGS (6)
  1. CYCLOPHOSPHAMIDE [Suspect]
  2. CYTARABINE [Suspect]
  3. DOXORUBICIN HYDROCHLORIDE [Suspect]
  4. METHOTREXATE [Suspect]
  5. DEXAMETHASONE [Suspect]
  6. THIOGUANINE [Suspect]

REACTIONS (8)
  - Pyrexia [None]
  - Chills [None]
  - Hyperhidrosis [None]
  - Headache [None]
  - White blood cell count decreased [None]
  - Platelet count decreased [None]
  - Blood culture positive [None]
  - Bacterial infection [None]
